FAERS Safety Report 8336096-4 (Version None)
Quarter: 2012Q1

REPORT INFORMATION
  Report Type: 
  Country: None (occurrence: None)
  Receive Date: 20120329
  Receipt Date: 20090120
  Transmission Date: 20120608
  Serious: Yes (Other)
  Sender: FDA-Public Use
  Company Number: PHEH2009US00552

PATIENT
  Age: 94 Year
  Sex: Female

DRUGS (3)
  1. EXELON [Suspect]
     Indication: DEMENTIA ALZHEIMER'S TYPE
     Dosage: 4.6 MG,, TRANSDERMAL UNK
     Route: 062
     Dates: start: 20090106, end: 20090108
  2. EXELON [Suspect]
     Indication: DEMENTIA ALZHEIMER'S TYPE
     Dosage: 4.6 MG,, TRANSDERMAL UNK
     Route: 062
     Dates: start: 20090114
  3. VERAPAMIL [Concomitant]

REACTIONS (1)
  - BLOOD PRESSURE INCREASED [None]
